FAERS Safety Report 8220235-X (Version None)
Quarter: 2012Q1

REPORT INFORMATION
  Report Type: 
  Country: None (occurrence: None)
  Receive Date: 20120320
  Receipt Date: 20120309
  Transmission Date: 20120608
  Serious: Yes (Life-Threatening, Hospitalization)
  Sender: FDA-Public Use
  Company Number: US-BAYER-2011-120129

PATIENT
  Age: 47 Year
  Sex: Female
  Weight: 90.703 kg

DRUGS (3)
  1. PROZAC [Concomitant]
     Indication: DEPRESSION
     Dosage: 20 MG, UNK
     Route: 048
  2. YASMIN [Suspect]
     Dosage: UNK
     Dates: start: 20090119, end: 20100909
  3. YAZ [Suspect]
     Dosage: UNK
     Dates: start: 20090119, end: 20100909

REACTIONS (6)
  - CEREBROVASCULAR ACCIDENT [None]
  - PAIN [None]
  - INJURY [None]
  - ANXIETY [None]
  - ANHEDONIA [None]
  - EMOTIONAL DISTRESS [None]
